FAERS Safety Report 23654487 (Version 1)
Quarter: 2024Q1

REPORT INFORMATION
  Report Type: Spontaneous
  Country: US (occurrence: None)
  Receive Date: 20240319
  Receipt Date: 20240319
  Transmission Date: 20240409
  Serious: Yes (Disabling)
  Sender: FDA-Public Use
  Company Number: None

PATIENT
  Age: 47 Year
  Sex: Female
  Weight: 68.4 kg

DRUGS (2)
  1. DULOXETINE HYDROCHLORIDE [Suspect]
     Active Substance: DULOXETINE HYDROCHLORIDE
     Indication: Anxiety
     Dosage: OTHER QUANTITY : 60 CAPSULE(S);?
     Route: 048
  2. VITAMINS [Concomitant]
     Active Substance: VITAMINS

REACTIONS (12)
  - Vision blurred [None]
  - Tooth disorder [None]
  - Sleep deficit [None]
  - Acne [None]
  - Alopecia [None]
  - Blood pressure increased [None]
  - Anxiety [None]
  - Photosensitivity reaction [None]
  - Rash [None]
  - Withdrawal syndrome [None]
  - Electric shock sensation [None]
  - Fatigue [None]

NARRATIVE: CASE EVENT DATE: 20220210
